FAERS Safety Report 4323319-1 (Version None)
Quarter: 2004Q1

REPORT INFORMATION
  Report Type: 
  Country: None (occurrence: None)
  Receive Date: 20040323
  Receipt Date: 20031114
  Transmission Date: 20041129
  Serious: No
  Sender: FDA-Public Use
  Company Number: M03-341-159

PATIENT
  Sex: Female
  Weight: 68 kg

DRUGS (4)
  1. VELCADE [Suspect]
     Indication: MULTIPLE MYELOMA
     Dosage: 1.3 MG/M2 BIW, INTRAVENOUS BOLUS
     Route: 040
     Dates: start: 20031013, end: 20031013
  2. ANTI-DIABETICS [Concomitant]
  3. VALTREX [Concomitant]
  4. ZOMETA [Concomitant]

REACTIONS (4)
  - ABDOMINAL DISTENSION [None]
  - CONSTIPATION [None]
  - FLATULENCE [None]
  - GASTROINTESTINAL OEDEMA [None]
